FAERS Safety Report 8999084 (Version 1)
Quarter: 2013Q1

REPORT INFORMATION
  Report Type: Spontaneous
  Country: FR (occurrence: FR)
  Receive Date: 20130103
  Receipt Date: 20130103
  Transmission Date: 20140127
  Serious: Yes (Hospitalization)
  Sender: FDA-Public Use
  Company Number: FR-SANOFI-AVENTIS-2012SA095550

PATIENT
  Age: 72 Year
  Sex: Female

DRUGS (17)
  1. LASILIX [Suspect]
     Indication: HYPERTENSION
     Route: 048
     Dates: end: 20111125
  2. LASILIX [Suspect]
     Indication: HYPERTENSION
     Dosage: THERAPY STOP DATE: NOV 2011
     Route: 048
     Dates: start: 20111125
  3. LASILIX [Suspect]
     Indication: HYPERTENSION
     Dosage: THERAPY STOP DATE: NOV 2011
     Route: 048
     Dates: start: 20111216
  4. LASILIX [Suspect]
     Indication: HYPERTENSION
     Dosage: THERAPY STOP DATE: NOV 2011
     Route: 048
     Dates: start: 201111, end: 201112
  5. LASILIX [Suspect]
     Indication: HYPERTENSION
     Dosage: THERAPY STOP DATE: NOV 2011
     Route: 048
     Dates: start: 20111213, end: 20111216
  6. ALDACTONE [Suspect]
     Indication: HYPERTENSION
     Route: 048
     Dates: end: 20111125
  7. ALDACTONE [Suspect]
     Indication: HYPERTENSION
     Route: 048
     Dates: start: 20111125, end: 201112
  8. ORBENINE [Suspect]
     Indication: PRODUCT USED FOR UNKNOWN INDICATION
     Route: 048
     Dates: end: 20111205
  9. KALEORID [Concomitant]
     Dosage: STRENGTH: 1000 MG
     Dates: end: 20111125
  10. BISOPROLOL [Concomitant]
  11. COUMADINE [Concomitant]
     Route: 048
  12. KAYEXALATE [Concomitant]
  13. OMEPRAZOLE [Concomitant]
     Dosage: STRENGTH: 20 MG
     Route: 048
  14. ATARAX [Concomitant]
     Dosage: STRENGTH: 25 MG
     Route: 048
  15. ATARAX [Concomitant]
     Dosage: STRENGTH: 25 MG
     Route: 048
  16. DOLIPRANE [Concomitant]
     Dosage: STRENGTH: 500 MG
  17. FUNGIZONE [Concomitant]
     Route: 048

REACTIONS (6)
  - International normalised ratio increased [Recovered/Resolved]
  - Renal failure acute [Recovered/Resolved]
  - C-reactive protein increased [Recovered/Resolved]
  - Blood urea increased [Recovered/Resolved]
  - Blood creatinine increased [Recovered/Resolved]
  - Dehydration [Recovered/Resolved]
